FAERS Safety Report 19804495 (Version 1)
Quarter: 2021Q3

REPORT INFORMATION
  Report Type: Spontaneous
  Country: CN (occurrence: CN)
  Receive Date: 20210908
  Receipt Date: 20210908
  Transmission Date: 20211014
  Serious: Yes (Hospitalization, Other)
  Sender: FDA-Public Use
  Company Number: CN-GLAXOSMITHKLINE-CN2021APC179686

PATIENT
  Age: 48 Year
  Sex: Male

DRUGS (2)
  1. LAMOTRIGINE. [Suspect]
     Active Substance: LAMOTRIGINE
     Indication: EPILEPSY
     Dosage: 50 MG, QD
     Route: 048
  2. TOPIRAMATE. [Concomitant]
     Active Substance: TOPIRAMATE
     Indication: EPILEPSY
     Dosage: 50 MG, QD
     Route: 048

REACTIONS (25)
  - Flushing [Recovered/Resolved]
  - Blood pressure decreased [Recovered/Resolved]
  - White blood cell count increased [Recovered/Resolved]
  - Drug reaction with eosinophilia and systemic symptoms [Recovered/Resolved]
  - Pruritus [Recovered/Resolved]
  - Oedema peripheral [Recovered/Resolved]
  - Skin exfoliation [Recovered/Resolved]
  - Scab [Recovered/Resolved]
  - Scrotal oedema [Recovered/Resolved]
  - Klebsiella infection [Recovered/Resolved]
  - Hypoalbuminaemia [Recovered/Resolved]
  - Body temperature increased [Recovered/Resolved]
  - Swelling face [Recovered/Resolved]
  - Escherichia infection [Recovered/Resolved]
  - Skin infection [Recovered/Resolved]
  - Respiratory rate increased [Recovered/Resolved]
  - Rash erythematous [Recovered/Resolved]
  - Hepatic cyst [Recovered/Resolved]
  - Pleural effusion [Recovered/Resolved]
  - Hypoproteinaemia [Recovered/Resolved]
  - Hepatic cirrhosis [Recovered/Resolved]
  - Splenomegaly [Recovered/Resolved]
  - Heart rate increased [Recovered/Resolved]
  - Pneumonitis [Recovered/Resolved]
  - Eosinophil count increased [Recovered/Resolved]

NARRATIVE: CASE EVENT DATE: 20190711
